FAERS Safety Report 4352343-8 (Version None)
Quarter: 2004Q2

REPORT INFORMATION
  Report Type: 
  Country: None (occurrence: None)
  Receive Date: 20040427
  Receipt Date: 20040107
  Transmission Date: 20050107
  Serious: Yes (Disabling)
  Sender: FDA-Public Use
  Company Number: WAES 0401USA00518

PATIENT
  Age: 60 Year
  Sex: Female

DRUGS (1)
  1. SINGULAIR [Suspect]
     Indication: ASTHMA
     Dosage: 10 MG/DAILY/PO
     Route: 048
     Dates: start: 20020101, end: 20040106

REACTIONS (2)
  - EAR INFECTION [None]
  - UPPER RESPIRATORY TRACT INFECTION [None]
